FAERS Safety Report 9434653 (Version 1)
Quarter: 2013Q3

REPORT INFORMATION
  Report Type: Spontaneous
  Country: US (occurrence: None)
  Receive Date: 20130731
  Receipt Date: 20130731
  Transmission Date: 20140515
  Serious: Yes (Other)
  Sender: FDA-Public Use
  Company Number: None

PATIENT
  Age: 54 Year
  Sex: Female

DRUGS (1)
  1. LEVOTHYROXINE [Suspect]
     Indication: HYPOTHYROIDISM
     Dosage: 112MCG EVERY DAY PO
     Route: 048
     Dates: start: 20130630, end: 20130722

REACTIONS (11)
  - Hypertension [None]
  - Constipation [None]
  - Dry mouth [None]
  - Nausea [None]
  - Dizziness [None]
  - Asthenia [None]
  - Muscle twitching [None]
  - Headache [None]
  - Mood altered [None]
  - Feeling abnormal [None]
  - Product solubility abnormal [None]
